FAERS Safety Report 4421941-5 (Version None)
Quarter: 2004Q3

REPORT INFORMATION
  Report Type: 
  Country: None (occurrence: None)
  Receive Date: 20040804
  Receipt Date: 20040721
  Transmission Date: 20050211
  Serious: Yes (Hospitalization)
  Sender: FDA-Public Use
  Company Number: 04P-163-0267645-00

PATIENT
  Age: 69 Year
  Sex: Female
  Weight: 65.318 kg

DRUGS (13)
  1. HUMIRA [Suspect]
     Indication: RHEUMATOID ARTHRITIS
     Dosage: 40 MG, 1 IN 2 WK, SUBCUTANEOUS
     Route: 058
     Dates: start: 20040618, end: 20040716
  2. PEDIACARE COUGH-COLD [Concomitant]
  3. NISOLDIPINE [Concomitant]
  4. ATORVASTATIN [Concomitant]
  5. LANSOPRAZOLE [Concomitant]
  6. MAGNESIUM [Concomitant]
  7. METHYLPREDNISOLONE [Concomitant]
  8. METHOTREXATE SODIUM [Concomitant]
  9. POTASSIUM [Concomitant]
  10. CALCIUM [Concomitant]
  11. FOLIC ACID [Concomitant]
  12. PROPACET 100 [Concomitant]
  13. ESTRADIOL [Concomitant]

REACTIONS (1)
  - CEREBROVASCULAR ACCIDENT [None]
